FAERS Safety Report 9498220 (Version 1)
Quarter: 2013Q3

REPORT INFORMATION
  Report Type: Spontaneous
  Country: US (occurrence: None)
  Receive Date: 20130903
  Receipt Date: 20130903
  Transmission Date: 20140515
  Serious: Yes (Disabling)
  Sender: FDA-Public Use
  Company Number: None

PATIENT
  Age: 80 Year
  Sex: Female
  Weight: 77 kg

DRUGS (2)
  1. ETHACRYNIC ACID [Suspect]
     Indication: FLUID OVERLOAD
     Dates: start: 20130825
  2. VANCOMYCIN [Concomitant]

REACTIONS (2)
  - Deafness [None]
  - Mental status changes [None]
